FAERS Safety Report 9772124 (Version 2)
Quarter: 2014Q1

REPORT INFORMATION
  Report Type: Spontaneous
  Country: US (occurrence: US)
  Receive Date: 20131219
  Receipt Date: 20140106
  Transmission Date: 20141002
  Serious: Yes (Hospitalization, Other)
  Sender: FDA-Public Use
  Company Number: US-JNJFOC-20131207586

PATIENT
  Age: 81 Year
  Sex: Male
  Weight: 74.84 kg

DRUGS (9)
  1. XARELTO [Suspect]
     Indication: CEREBROVASCULAR ACCIDENT PROPHYLAXIS
     Route: 048
     Dates: start: 20130820
  2. XARELTO [Suspect]
     Indication: ATRIAL FIBRILLATION
     Route: 048
     Dates: start: 20130820
  3. FLECAINIDE ACETATE [Suspect]
     Indication: ATRIAL FIBRILLATION
     Route: 065
     Dates: start: 20130820, end: 20131210
  4. BABY ASPIRIN [Suspect]
     Indication: ATRIAL FIBRILLATION
     Route: 065
     Dates: start: 20130909, end: 20131209
  5. LISINOPRIL [Concomitant]
     Indication: BLOOD PRESSURE
     Route: 065
  6. DILTIAZEM [Concomitant]
     Route: 065
     Dates: start: 201312
  7. METOPROLOL [Concomitant]
     Indication: BLOOD PRESSURE
     Route: 065
     Dates: start: 200908
  8. METOPROLOL [Concomitant]
     Indication: BLOOD PRESSURE
     Route: 065
  9. METOPROLOL [Concomitant]
     Indication: BLOOD PRESSURE
     Dosage: FOR 3-4 DAYS
     Route: 065

REACTIONS (8)
  - Blood urine present [Recovering/Resolving]
  - Atrial fibrillation [Unknown]
  - Haematochezia [Recovering/Resolving]
  - Presyncope [Unknown]
  - Hypotension [Unknown]
  - Anaemia [Recovering/Resolving]
  - Gingival bleeding [Recovering/Resolving]
  - Heart rate increased [Unknown]
